FAERS Safety Report 15515194 (Version 1)
Quarter: 2018Q4

REPORT INFORMATION
  Report Type: Report from Study
  Country: DE (occurrence: DE)
  Receive Date: 20181017
  Receipt Date: 20181017
  Transmission Date: 20190205
  Serious: Yes (Other)
  Sender: FDA-Public Use
  Company Number: DE-ROCHE-2199823

PATIENT
  Sex: Female

DRUGS (16)
  1. RANIBIZUMAB. [Suspect]
     Active Substance: RANIBIZUMAB
     Dosage: 0.5 MG (RIGHT EYE, LEFT EYE)
     Route: 031
     Dates: start: 20170505
  2. RANIBIZUMAB. [Suspect]
     Active Substance: RANIBIZUMAB
     Dosage: 0.5 MG (RIGHT EYE, LEFT EYE)
     Route: 031
     Dates: start: 20170602
  3. RANIBIZUMAB. [Suspect]
     Active Substance: RANIBIZUMAB
     Dosage: 0.5 MG (RIGHT EYE, LEFT EYE)
     Route: 031
     Dates: start: 20171020
  4. RANIBIZUMAB. [Suspect]
     Active Substance: RANIBIZUMAB
     Dosage: 0.5 MG (RIGHT EYE, LEFT EYE)
     Route: 031
     Dates: start: 20170310
  5. RANIBIZUMAB. [Suspect]
     Active Substance: RANIBIZUMAB
     Dosage: 0.5 MG (RIGHT EYE, LEFT EYE)
     Route: 031
     Dates: start: 20170630
  6. RANIBIZUMAB. [Suspect]
     Active Substance: RANIBIZUMAB
     Dosage: 0.5 MG (RIGHT EYE, LEFT EYE)
     Route: 031
     Dates: start: 20170922
  7. RANIBIZUMAB. [Suspect]
     Active Substance: RANIBIZUMAB
     Indication: VISUAL IMPAIRMENT
     Dosage: 0.5 MG (RIGHT EYE, LEFT EYE)
     Route: 031
     Dates: start: 20161014
  8. RANIBIZUMAB. [Suspect]
     Active Substance: RANIBIZUMAB
     Dosage: 0.5 MG (RIGHT EYE, LEFT EYE)
     Route: 031
     Dates: start: 20161209
  9. RANIBIZUMAB. [Suspect]
     Active Substance: RANIBIZUMAB
     Dosage: 0.5 MG (RIGHT EYE, LEFT EYE)
     Route: 031
     Dates: start: 20170825
  10. RANIBIZUMAB. [Suspect]
     Active Substance: RANIBIZUMAB
     Dosage: 0.5 MG (RIGHT EYE, LEFT EYE)
     Route: 031
     Dates: start: 20170728
  11. RANIBIZUMAB. [Suspect]
     Active Substance: RANIBIZUMAB
     Dosage: 0.5 MG (RIGHT EYE, LEFT EYE)
     Route: 031
     Dates: start: 20170210
  12. RANIBIZUMAB. [Suspect]
     Active Substance: RANIBIZUMAB
     Dosage: 0.5 MG (RIGHT EYE, LEFT EYE)
     Route: 031
     Dates: start: 20170407
  13. RANIBIZUMAB. [Suspect]
     Active Substance: RANIBIZUMAB
     Dosage: 0.5 MG (RIGHT EYE, LEFT EYE)
     Route: 031
     Dates: start: 20161111
  14. RANIBIZUMAB. [Suspect]
     Active Substance: RANIBIZUMAB
     Dosage: 0.5 MG (RIGHT EYE, LEFT EYE)
     Route: 031
     Dates: start: 20170110
  15. RANIBIZUMAB. [Suspect]
     Active Substance: RANIBIZUMAB
     Dosage: 0.5 MG (RIGHT EYE, LEFT EYE)
     Route: 031
     Dates: start: 20171117
  16. RANIBIZUMAB. [Suspect]
     Active Substance: RANIBIZUMAB
     Dosage: 0.5 MG (RIGHT EYE, LEFT EYE)
     Route: 031
     Dates: start: 20171215

REACTIONS (1)
  - Cystoid macular oedema [Not Recovered/Not Resolved]

NARRATIVE: CASE EVENT DATE: 20171215
